FAERS Safety Report 10628339 (Version 1)
Quarter: 2014Q4

REPORT INFORMATION
  Report Type: Spontaneous
  Country: US (occurrence: US)
  Receive Date: 20141205
  Receipt Date: 20141205
  Transmission Date: 20150529
  Serious: No
  Sender: FDA-Public Use
  Company Number: US-BRISTOL-MYERS SQUIBB COMPANY-21296942

PATIENT
  Age: 75 Year
  Sex: Female

DRUGS (5)
  1. LITHIUM [Concomitant]
     Active Substance: LITHIUM CARBONATE
  2. ABILIFY [Suspect]
     Active Substance: ARIPIPRAZOLE
     Indication: BIPOLAR DISORDER
     Route: 048
     Dates: start: 201309
  3. L-LYSINE [Concomitant]
     Active Substance: LYSINE
  4. HALDOL [Concomitant]
     Active Substance: HALOPERIDOL
  5. PROZAC [Concomitant]
     Active Substance: FLUOXETINE HYDROCHLORIDE

REACTIONS (10)
  - Tremor [Unknown]
  - Feeling drunk [Unknown]
  - Wrong technique in drug usage process [Unknown]
  - Pain [Unknown]
  - Tendon rupture [Unknown]
  - Muscle tightness [Unknown]
  - Pain in extremity [Unknown]
  - Hypoaesthesia [Unknown]
  - Paraesthesia [Unknown]
  - Gait disturbance [Unknown]
